FAERS Safety Report 7358861-2 (Version None)
Quarter: 2011Q1

REPORT INFORMATION
  Report Type: 
  Country: None (occurrence: None)
  Receive Date: 20110317
  Receipt Date: 20110308
  Transmission Date: 20110831
  Serious: Yes (Other)
  Sender: FDA-Public Use
  Company Number: B0705925A

PATIENT
  Age: 86 Year
  Sex: Female

DRUGS (1)
  1. VALTREX [Suspect]
     Indication: HERPES SIMPLEX
     Dosage: 1000MG PER DAY
     Route: 048
     Dates: start: 20110221

REACTIONS (5)
  - RENAL FAILURE [None]
  - OVERDOSE [None]
  - PYREXIA [None]
  - EYELID OEDEMA [None]
  - DISCOMFORT [None]
